FAERS Safety Report 15645639 (Version 1)
Quarter: 2018Q4

REPORT INFORMATION
  Report Type: Spontaneous
  Country: US (occurrence: US)
  Receive Date: 20181121
  Receipt Date: 20181121
  Transmission Date: 20190205
  Serious: Yes (Other)
  Sender: FDA-Public Use
  Company Number: US-RISING PHARMACEUTICALS, INC.-2018RIS00521

PATIENT
  Sex: Female

DRUGS (4)
  1. METHIMAZOLE. [Suspect]
     Active Substance: METHIMAZOLE
     Indication: HYPERTHYROIDISM
     Dosage: UNK
  2. METHIMAZOLE. [Suspect]
     Active Substance: METHIMAZOLE
     Dosage: UNK
  3. METHIMAZOLE. [Suspect]
     Active Substance: METHIMAZOLE
     Dosage: UNK
  4. ATENOLOL. [Suspect]
     Active Substance: ATENOLOL
     Dosage: UNK

REACTIONS (1)
  - Basedow^s disease [Unknown]
